FAERS Safety Report 10137288 (Version 2)
Quarter: 2015Q1

REPORT INFORMATION
  Report Type: Other
  Country: US (occurrence: US)
  Receive Date: 20140429
  Receipt Date: 20150219
  Transmission Date: 20150720
  Serious: Yes (Death, Hospitalization, Other)
  Sender: FDA-Public Use
  Company Number: US-GSKPPD-2014GSK042247

PATIENT
  Age: 69 Year
  Sex: Female

DRUGS (5)
  1. NORVASC [Concomitant]
     Active Substance: AMLODIPINE BESYLATE
  2. METOPROLOL [Concomitant]
     Active Substance: METOPROLOL
  3. LASIX [Concomitant]
     Active Substance: FUROSEMIDE
  4. AVANDIA [Suspect]
     Active Substance: ROSIGLITAZONE MALEATE
     Indication: DIABETES MELLITUS
     Dosage: AVANDIA WAS NOT LISTED AMONG THE PATIENTS RECORDS REVIEWED.
     Route: 048
  5. CLONIDINE. [Concomitant]
     Active Substance: CLONIDINE

REACTIONS (4)
  - Transient ischaemic attack [Unknown]
  - Myocardial infarction [Unknown]
  - Cardiopulmonary failure [Fatal]
  - Cerebrovascular accident [Unknown]

NARRATIVE: CASE EVENT DATE: 20060916
